FAERS Safety Report 13143744 (Version 1)
Quarter: 2017Q1

REPORT INFORMATION
  Report Type: Not Available
  Country: US (occurrence: US)
  Receive Date: 20170124
  Receipt Date: 20170124
  Transmission Date: 20170428
  Serious: Yes (Other)
  Sender: FDA-Public Use
  Company Number: US-ANIPHARMA-2017-US-000690

PATIENT
  Age: 75 Year
  Sex: Male

DRUGS (2)
  1. PREDNISONE. [Suspect]
     Active Substance: PREDNISONE
     Route: 065
  2. PYRIDOSTIGMINE (NON-SPECIFIC) [Suspect]
     Active Substance: PYRIDOSTIGMINE
     Route: 065

REACTIONS (2)
  - Angina pectoris [Unknown]
  - Hyperglycaemia [None]
